FAERS Safety Report 6129138-8 (Version None)
Quarter: 2009Q1

REPORT INFORMATION
  Report Type: 
  Country: None (occurrence: None)
  Receive Date: 20090320
  Receipt Date: 20090311
  Transmission Date: 20090719
  Serious: Yes (Death)
  Sender: FDA-Public Use
  Company Number: GXKR2009JP03173

PATIENT
  Age: 60 Year
  Sex: Male

DRUGS (13)
  1. CYCLOSPORINE [Suspect]
     Indication: PROPHYLAXIS AGAINST GRAFT VERSUS HOST DISEASE
     Dosage: 3 MG/KG, FROM DAY -1, INFUSION
  2. FLUDARABINE PHOSPHATE [Concomitant]
  3. MELPHALAN (MELPHALAN) [Concomitant]
  4. IRRADIATION (NO INGREDIENTS/SUBSTANCES) [Concomitant]
  5. IMMUNE GLOBULIN (HUMAN) [Concomitant]
  6. CEFPIROME (CEFPIROME) [Concomitant]
  7. CEFEPIME [Concomitant]
  8. METHYLPREDNISOLONE 16MG TAB [Concomitant]
  9. SULFAMETHOXAZOLE W/TRIMETHOPRIM (SULFAMETHOXAZOLE, TRIMETHOPRIM) [Concomitant]
  10. FLUOROQUINOLONES (NO INGREDIENTS/SUBSTANCES) [Concomitant]
  11. FLUCONAZOLE [Concomitant]
  12. ACYCLOVIR [Concomitant]
  13. GRANULOCYTE COLONY STIMULATING FACTOR (GRANULOCYTE COLONY STIMULATING [Concomitant]

REACTIONS (2)
  - DEPRESSED LEVEL OF CONSCIOUSNESS [None]
  - ENCEPHALOPATHY [None]
